FAERS Safety Report 25003593 (Version 2)
Quarter: 2025Q1

REPORT INFORMATION
  Report Type: Spontaneous
  Country: CA (occurrence: CA)
  Receive Date: 20250224
  Receipt Date: 20250319
  Transmission Date: 20250408
  Serious: Yes (Other)
  Sender: TEVA
  Company Number: CA-TEVA-VS-3301424

PATIENT
  Age: 53 Year
  Sex: Male

DRUGS (223)
  1. CANDESARTAN [Suspect]
     Active Substance: CANDESARTAN
     Indication: Product used for unknown indication
     Route: 048
  2. OMEPRAZOLE [Suspect]
     Active Substance: OMEPRAZOLE
     Indication: Gastritis
     Route: 065
  3. VITAMIN D3 [Suspect]
     Active Substance: CHOLECALCIFEROL
     Indication: Product used for unknown indication
     Route: 065
  4. VITAMIN D3 [Suspect]
     Active Substance: CHOLECALCIFEROL
     Indication: Product used for unknown indication
     Route: 065
  5. WARFARIN [Suspect]
     Active Substance: WARFARIN
     Indication: Colitis ulcerative
     Route: 065
  6. WARFARIN [Suspect]
     Active Substance: WARFARIN
     Indication: Colitis ulcerative
     Route: 065
  7. WARFARIN [Suspect]
     Active Substance: WARFARIN
     Indication: Colitis ulcerative
     Route: 065
  8. WARFARIN [Suspect]
     Active Substance: WARFARIN
     Indication: Colitis ulcerative
     Route: 048
  9. WARFARIN [Suspect]
     Active Substance: WARFARIN
     Indication: Colitis ulcerative
     Route: 048
  10. WARFARIN [Suspect]
     Active Substance: WARFARIN
     Indication: Colitis ulcerative
     Route: 048
  11. WARFARIN [Suspect]
     Active Substance: WARFARIN
     Indication: Colitis ulcerative
     Route: 048
  12. WARFARIN [Suspect]
     Active Substance: WARFARIN
     Indication: Colitis ulcerative
     Route: 065
  13. BETNOVATE [Concomitant]
     Active Substance: BETAMETHASONE
     Indication: Product used for unknown indication
     Route: 065
  14. ALBENDAZOLE [Suspect]
     Active Substance: ALBENDAZOLE
     Indication: Colitis ulcerative
     Route: 042
  15. ALBENDAZOLE [Suspect]
     Active Substance: ALBENDAZOLE
     Indication: Colitis ulcerative
     Route: 042
  16. DORZOLAMIDE HYDROCHLORIDE [Concomitant]
     Active Substance: DORZOLAMIDE HYDROCHLORIDE
     Indication: Product used for unknown indication
     Route: 065
  17. GABAPENTIN [Suspect]
     Active Substance: GABAPENTIN
     Indication: Product used for unknown indication
     Route: 065
  18. OXYCODONE HYDROCHLORIDE [Suspect]
     Active Substance: OXYCODONE HYDROCHLORIDE
     Indication: Product used for unknown indication
     Route: 065
  19. TETRAHYDROZOLINE HYDROCHLORIDE [Concomitant]
     Active Substance: TETRAHYDROZOLINE HYDROCHLORIDE
     Indication: Product used for unknown indication
     Route: 065
  20. NITROFURANTOIN [Concomitant]
     Active Substance: NITROFURANTOIN
     Indication: Product used for unknown indication
     Route: 065
  21. EPINEPHRINE HYDROCHLORIDE [Suspect]
     Active Substance: EPINEPHRINE HYDROCHLORIDE
     Indication: Product used for unknown indication
     Route: 065
  22. EMPAGLIFLOZIN [Concomitant]
     Active Substance: EMPAGLIFLOZIN
     Indication: Product used for unknown indication
     Route: 065
  23. MACROGOL 3350 POTASSIUM CHLORIDE SODIUM BICARBONATE SODIUMCHLORIDE [Concomitant]
     Indication: Product used for unknown indication
     Route: 065
  24. MACROGOL 3350 POTASSIUM CHLORIDE SODIUM BICARBONATE SODIUMCHLORIDE [Concomitant]
     Indication: Product used for unknown indication
     Route: 065
  25. MACROGOL 3350 POTASSIUM CHLORIDE SODIUM BICARBONATE SODIUMCHLORIDE [Concomitant]
     Indication: Product used for unknown indication
     Route: 065
  26. FESOTERODINE FUMARATE [Concomitant]
     Active Substance: FESOTERODINE FUMARATE
     Indication: Product used for unknown indication
     Route: 048
  27. ADALIMUMAB [Suspect]
     Active Substance: ADALIMUMAB
     Indication: Colitis ulcerative
     Route: 048
  28. ADALIMUMAB [Suspect]
     Active Substance: ADALIMUMAB
     Indication: Colitis ulcerative
     Route: 058
  29. ADALIMUMAB [Suspect]
     Active Substance: ADALIMUMAB
     Indication: Colitis ulcerative
     Route: 048
  30. ACETAMINOPHEN [Concomitant]
     Active Substance: ACETAMINOPHEN
     Indication: Ill-defined disorder
     Route: 065
  31. ACETAMINOPHEN [Concomitant]
     Active Substance: ACETAMINOPHEN
     Indication: Ill-defined disorder
     Route: 065
  32. OMEPRAZOLE [Suspect]
     Active Substance: OMEPRAZOLE
     Indication: Gastritis
     Route: 065
  33. LANSOPRAZOLE [Concomitant]
     Active Substance: LANSOPRAZOLE
     Indication: Product used for unknown indication
     Route: 065
  34. METHOTREXATE [Concomitant]
     Active Substance: METHOTREXATE
     Indication: Colitis ulcerative
     Route: 065
  35. METHOTREXATE [Concomitant]
     Active Substance: METHOTREXATE
     Indication: Colitis ulcerative
     Route: 065
  36. METHOTREXATE [Concomitant]
     Active Substance: METHOTREXATE
     Indication: Colitis ulcerative
     Route: 065
  37. METHOTREXATE [Concomitant]
     Active Substance: METHOTREXATE
     Indication: Colitis ulcerative
     Route: 065
  38. METHOTREXATE [Concomitant]
     Active Substance: METHOTREXATE
     Indication: Colitis ulcerative
     Route: 065
  39. ESCITALOPRAM [Suspect]
     Active Substance: ESCITALOPRAM OXALATE
     Indication: Product used for unknown indication
     Route: 065
  40. HYDROCORTISONE [Suspect]
     Active Substance: HYDROCORTISONE
     Indication: Colitis ulcerative
     Route: 048
  41. HYDROCORTISONE [Suspect]
     Active Substance: HYDROCORTISONE
     Indication: Colitis ulcerative
     Route: 065
  42. HYDROCORTISONE [Suspect]
     Active Substance: HYDROCORTISONE
     Indication: Colitis ulcerative
     Route: 065
  43. HYDROCORTISONE [Suspect]
     Active Substance: HYDROCORTISONE
     Indication: Colitis ulcerative
     Route: 048
  44. HYDROCORTISONE [Suspect]
     Active Substance: HYDROCORTISONE
     Indication: Colitis ulcerative
     Route: 065
  45. HYDROCORTISONE [Suspect]
     Active Substance: HYDROCORTISONE
     Indication: Colitis ulcerative
     Route: 048
  46. HYDROCORTISONE [Suspect]
     Active Substance: HYDROCORTISONE
     Indication: Colitis ulcerative
     Route: 065
  47. HYDROCORTISONE [Suspect]
     Active Substance: HYDROCORTISONE
     Indication: Colitis ulcerative
     Route: 048
  48. MESALAMINE [Suspect]
     Active Substance: MESALAMINE
     Indication: Colitis ulcerative
     Route: 065
  49. MESALAMINE [Suspect]
     Active Substance: MESALAMINE
     Indication: Colitis ulcerative
     Route: 065
  50. MESALAMINE [Suspect]
     Active Substance: MESALAMINE
     Indication: Colitis ulcerative
     Route: 065
  51. MESALAMINE [Suspect]
     Active Substance: MESALAMINE
     Indication: Colitis ulcerative
     Route: 065
  52. MESALAMINE [Suspect]
     Active Substance: MESALAMINE
     Indication: Colitis ulcerative
     Route: 065
  53. MESALAMINE [Suspect]
     Active Substance: MESALAMINE
     Indication: Colitis ulcerative
     Route: 065
  54. MESALAMINE [Suspect]
     Active Substance: MESALAMINE
     Indication: Colitis ulcerative
     Route: 065
  55. MESALAMINE [Suspect]
     Active Substance: MESALAMINE
     Indication: Colitis ulcerative
     Route: 048
  56. MESALAMINE [Suspect]
     Active Substance: MESALAMINE
     Indication: Colitis ulcerative
     Route: 048
  57. MESALAMINE [Suspect]
     Active Substance: MESALAMINE
     Indication: Colitis ulcerative
     Route: 048
  58. MESALAMINE [Suspect]
     Active Substance: MESALAMINE
     Indication: Colitis ulcerative
     Route: 065
  59. MESALAMINE [Suspect]
     Active Substance: MESALAMINE
     Indication: Colitis ulcerative
     Route: 065
  60. MESALAMINE [Suspect]
     Active Substance: MESALAMINE
     Indication: Colitis ulcerative
     Route: 065
  61. MESALAMINE [Suspect]
     Active Substance: MESALAMINE
     Indication: Colitis ulcerative
     Route: 065
  62. MESALAMINE [Suspect]
     Active Substance: MESALAMINE
     Indication: Colitis ulcerative
     Route: 065
  63. MESALAMINE [Suspect]
     Active Substance: MESALAMINE
     Indication: Colitis ulcerative
     Route: 065
  64. MESALAMINE [Suspect]
     Active Substance: MESALAMINE
     Indication: Colitis ulcerative
     Dosage: DOSAGE FORM: NOT SPECIFIED
     Route: 065
  65. MESALAMINE [Suspect]
     Active Substance: MESALAMINE
     Indication: Colitis ulcerative
     Route: 048
  66. MESALAMINE [Suspect]
     Active Substance: MESALAMINE
     Indication: Colitis ulcerative
     Route: 048
  67. MESALAMINE [Suspect]
     Active Substance: MESALAMINE
     Indication: Colitis ulcerative
     Route: 048
  68. MESALAMINE [Suspect]
     Active Substance: MESALAMINE
     Indication: Colitis ulcerative
     Route: 048
  69. PRAVASTATIN [Concomitant]
     Active Substance: PRAVASTATIN
     Indication: Product used for unknown indication
     Route: 065
  70. TOZINAMERAN [Suspect]
     Active Substance: TOZINAMERAN
     Indication: Product used for unknown indication
     Route: 065
  71. INFLIXIMAB [Suspect]
     Active Substance: INFLIXIMAB
     Indication: Crohn^s disease
     Route: 065
  72. INFLIXIMAB [Suspect]
     Active Substance: INFLIXIMAB
     Indication: Crohn^s disease
     Route: 042
  73. INFLIXIMAB [Suspect]
     Active Substance: INFLIXIMAB
     Indication: Crohn^s disease
     Route: 042
  74. INFLIXIMAB [Suspect]
     Active Substance: INFLIXIMAB
     Indication: Crohn^s disease
     Route: 042
  75. INFLIXIMAB [Suspect]
     Active Substance: INFLIXIMAB
     Indication: Crohn^s disease
     Route: 042
  76. INFLIXIMAB [Suspect]
     Active Substance: INFLIXIMAB
     Indication: Crohn^s disease
     Route: 065
  77. INFLIXIMAB [Suspect]
     Active Substance: INFLIXIMAB
     Indication: Crohn^s disease
     Route: 065
  78. INFLIXIMAB [Suspect]
     Active Substance: INFLIXIMAB
     Indication: Crohn^s disease
     Route: 065
  79. INFLIXIMAB [Suspect]
     Active Substance: INFLIXIMAB
     Indication: Crohn^s disease
     Route: 042
  80. INFLIXIMAB [Suspect]
     Active Substance: INFLIXIMAB
     Indication: Crohn^s disease
     Route: 042
  81. INFLIXIMAB [Suspect]
     Active Substance: INFLIXIMAB
     Indication: Crohn^s disease
     Route: 042
  82. INFLIXIMAB [Suspect]
     Active Substance: INFLIXIMAB
     Indication: Crohn^s disease
     Route: 042
  83. INFLIXIMAB [Suspect]
     Active Substance: INFLIXIMAB
     Indication: Crohn^s disease
     Route: 042
  84. ASACOL [Suspect]
     Active Substance: MESALAMINE
     Indication: Colitis ulcerative
     Route: 065
  85. ASACOL [Suspect]
     Active Substance: MESALAMINE
     Indication: Colitis ulcerative
     Route: 065
  86. ASACOL [Suspect]
     Active Substance: MESALAMINE
     Indication: Colitis ulcerative
     Route: 065
  87. ASACOL [Suspect]
     Active Substance: MESALAMINE
     Indication: Colitis ulcerative
     Route: 065
  88. ASACOL [Suspect]
     Active Substance: MESALAMINE
     Indication: Colitis ulcerative
     Route: 065
  89. ASACOL [Suspect]
     Active Substance: MESALAMINE
     Indication: Colitis ulcerative
     Route: 065
  90. ASACOL [Suspect]
     Active Substance: MESALAMINE
     Indication: Colitis ulcerative
     Route: 048
  91. ASACOL [Suspect]
     Active Substance: MESALAMINE
     Indication: Colitis ulcerative
     Route: 065
  92. ASACOL [Suspect]
     Active Substance: MESALAMINE
     Indication: Colitis ulcerative
     Route: 065
  93. ASACOL [Suspect]
     Active Substance: MESALAMINE
     Indication: Colitis ulcerative
     Route: 065
  94. ASACOL [Suspect]
     Active Substance: MESALAMINE
     Indication: Colitis ulcerative
     Route: 065
  95. ASACOL [Suspect]
     Active Substance: MESALAMINE
     Indication: Colitis ulcerative
     Route: 065
  96. ASACOL [Suspect]
     Active Substance: MESALAMINE
     Indication: Colitis ulcerative
     Route: 065
  97. ASACOL [Suspect]
     Active Substance: MESALAMINE
     Indication: Colitis ulcerative
     Route: 065
  98. FUROSEMIDE [Suspect]
     Active Substance: FUROSEMIDE
     Indication: Product used for unknown indication
     Route: 065
  99. LEVOTHYROXINE [Suspect]
     Active Substance: LEVOTHYROXINE
     Indication: Product used for unknown indication
     Route: 065
  100. AMLODIPINE [Concomitant]
     Active Substance: AMLODIPINE BESYLATE
     Indication: Product used for unknown indication
     Route: 065
  101. AMLODIPINE [Concomitant]
     Active Substance: AMLODIPINE BESYLATE
     Indication: Product used for unknown indication
     Route: 048
  102. AMLODIPINE [Concomitant]
     Active Substance: AMLODIPINE BESYLATE
     Indication: Product used for unknown indication
     Route: 048
  103. PREDNISONE [Suspect]
     Active Substance: PREDNISONE
     Indication: Colitis ulcerative
     Route: 065
  104. PREDNISONE [Suspect]
     Active Substance: PREDNISONE
     Indication: Colitis ulcerative
     Route: 065
  105. PREDNISONE [Suspect]
     Active Substance: PREDNISONE
     Indication: Colitis ulcerative
     Route: 065
  106. PREDNISONE [Suspect]
     Active Substance: PREDNISONE
     Indication: Colitis ulcerative
     Route: 065
  107. PREDNISONE [Suspect]
     Active Substance: PREDNISONE
     Indication: Colitis ulcerative
     Route: 065
  108. PREDNISONE [Suspect]
     Active Substance: PREDNISONE
     Indication: Colitis ulcerative
     Route: 065
  109. PREDNISONE [Suspect]
     Active Substance: PREDNISONE
     Indication: Colitis ulcerative
     Route: 065
  110. XELJANZ [Concomitant]
     Active Substance: TOFACITINIB CITRATE
     Indication: Colitis ulcerative
     Route: 048
  111. XELJANZ [Concomitant]
     Active Substance: TOFACITINIB CITRATE
     Indication: Colitis ulcerative
     Route: 048
  112. CALCIUM CARBONATE MAGNESIUM CARBONATE [Concomitant]
     Indication: Product used for unknown indication
     Route: 065
  113. HUMIRA [Concomitant]
     Active Substance: ADALIMUMAB
     Indication: Crohn^s disease
     Route: 065
  114. HUMIRA [Concomitant]
     Active Substance: ADALIMUMAB
     Indication: Crohn^s disease
     Route: 048
  115. HUMIRA [Concomitant]
     Active Substance: ADALIMUMAB
     Indication: Crohn^s disease
     Route: 048
  116. HUMIRA [Concomitant]
     Active Substance: ADALIMUMAB
     Indication: Crohn^s disease
     Route: 048
  117. HUMIRA [Concomitant]
     Active Substance: ADALIMUMAB
     Indication: Crohn^s disease
     Route: 065
  118. HUMIRA [Concomitant]
     Active Substance: ADALIMUMAB
     Indication: Crohn^s disease
     Route: 065
  119. HUMIRA [Concomitant]
     Active Substance: ADALIMUMAB
     Indication: Crohn^s disease
     Route: 065
  120. HUMIRA [Concomitant]
     Active Substance: ADALIMUMAB
     Indication: Crohn^s disease
     Route: 065
  121. HUMIRA [Concomitant]
     Active Substance: ADALIMUMAB
     Indication: Crohn^s disease
     Route: 065
  122. HUMIRA [Concomitant]
     Active Substance: ADALIMUMAB
     Indication: Crohn^s disease
     Route: 048
  123. BUDESONIDE [Suspect]
     Active Substance: BUDESONIDE
     Indication: Product used for unknown indication
     Route: 048
  124. BISOPROLOL [Concomitant]
     Active Substance: BISOPROLOL
     Indication: Product used for unknown indication
     Route: 048
  125. RIVAROXABAN [Concomitant]
     Active Substance: RIVAROXABAN
     Indication: Product used for unknown indication
     Route: 065
  126. CALCIUM CARBONATE SODIUM ALGINATE SODIUM BICARBONATE [Concomitant]
     Indication: Product used for unknown indication
     Route: 065
  127. MESALAMINE [Suspect]
     Active Substance: MESALAMINE
     Indication: Colitis ulcerative
     Route: 065
  128. MESALAMINE [Suspect]
     Active Substance: MESALAMINE
     Indication: Colitis ulcerative
     Route: 048
  129. MESALAMINE [Suspect]
     Active Substance: MESALAMINE
     Indication: Colitis ulcerative
     Route: 065
  130. MESALAMINE [Suspect]
     Active Substance: MESALAMINE
     Indication: Colitis ulcerative
     Route: 065
  131. MESALAMINE [Suspect]
     Active Substance: MESALAMINE
     Indication: Colitis ulcerative
     Route: 065
  132. MESALAMINE [Suspect]
     Active Substance: MESALAMINE
     Indication: Colitis ulcerative
     Route: 065
  133. MESALAMINE [Suspect]
     Active Substance: MESALAMINE
     Indication: Colitis ulcerative
     Dosage: MESALAZINE/MESALAMINE
     Route: 065
  134. MESALAMINE [Suspect]
     Active Substance: MESALAMINE
     Indication: Colitis ulcerative
     Route: 065
  135. MESALAMINE [Suspect]
     Active Substance: MESALAMINE
     Indication: Colitis ulcerative
     Route: 065
  136. MESALAMINE [Suspect]
     Active Substance: MESALAMINE
     Indication: Colitis ulcerative
     Route: 065
  137. MESALAMINE [Suspect]
     Active Substance: MESALAMINE
     Indication: Colitis ulcerative
     Route: 065
  138. MESALAMINE [Suspect]
     Active Substance: MESALAMINE
     Indication: Colitis ulcerative
     Route: 065
  139. FELODIPINE [Suspect]
     Active Substance: FELODIPINE
     Indication: Hypertension
     Route: 048
  140. LISDEXAMFETAMINE DIMESYLATE [Suspect]
     Active Substance: LISDEXAMFETAMINE DIMESYLATE
     Indication: Product used for unknown indication
     Route: 065
  141. AZD-1222 [Suspect]
     Active Substance: AZD-1222
     Indication: COVID-19 immunisation
     Route: 065
  142. AZD-1222 [Suspect]
     Active Substance: AZD-1222
     Indication: COVID-19 immunisation
     Route: 065
  143. AZD-1222 [Suspect]
     Active Substance: AZD-1222
     Indication: COVID-19 immunisation
     Route: 065
  144. AZD-1222 [Suspect]
     Active Substance: AZD-1222
     Indication: COVID-19 immunisation
     Route: 065
  145. AZD-1222 [Suspect]
     Active Substance: AZD-1222
     Indication: COVID-19 immunisation
     Route: 065
  146. AZD-1222 [Suspect]
     Active Substance: AZD-1222
     Indication: COVID-19 immunisation
     Route: 065
  147. AZD-1222 [Suspect]
     Active Substance: AZD-1222
     Indication: COVID-19 immunisation
     Route: 065
  148. AZD-1222 [Suspect]
     Active Substance: AZD-1222
     Indication: COVID-19 immunisation
     Route: 065
  149. AZD-1222 [Suspect]
     Active Substance: AZD-1222
     Indication: COVID-19 immunisation
     Route: 065
  150. AZD-1222 [Suspect]
     Active Substance: AZD-1222
     Indication: COVID-19 immunisation
     Route: 065
  151. AZD-1222 [Suspect]
     Active Substance: AZD-1222
     Indication: COVID-19 immunisation
     Route: 065
  152. AZD-1222 [Suspect]
     Active Substance: AZD-1222
     Indication: COVID-19 immunisation
     Route: 065
  153. AZD-1222 [Suspect]
     Active Substance: AZD-1222
     Indication: COVID-19 immunisation
     Route: 065
  154. LATANOPROST [Concomitant]
     Active Substance: LATANOPROST
     Indication: Product used for unknown indication
     Route: 065
  155. LATANOPROST [Concomitant]
     Active Substance: LATANOPROST
     Indication: Product used for unknown indication
     Route: 065
  156. ASPIRIN [Suspect]
     Active Substance: ASPIRIN
     Indication: Product used for unknown indication
     Route: 065
  157. ASPIRIN [Suspect]
     Active Substance: ASPIRIN
     Indication: Product used for unknown indication
     Route: 065
  158. FOLIC ACID [Concomitant]
     Active Substance: FOLIC ACID
     Indication: Deep vein thrombosis
     Route: 048
  159. PULMICORT TURBUHALER [Suspect]
     Active Substance: BUDESONIDE
     Indication: Colitis ulcerative
     Dosage: PULMICORT TURBUHALER
     Route: 048
  160. PULMICORT TURBUHALER [Suspect]
     Active Substance: BUDESONIDE
     Indication: Colitis ulcerative
     Route: 065
  161. PULMICORT TURBUHALER [Suspect]
     Active Substance: BUDESONIDE
     Indication: Colitis ulcerative
     Route: 065
  162. PULMICORT TURBUHALER [Suspect]
     Active Substance: BUDESONIDE
     Indication: Colitis ulcerative
     Route: 065
  163. PULMICORT TURBUHALER [Suspect]
     Active Substance: BUDESONIDE
     Indication: Colitis ulcerative
     Route: 065
  164. PULMICORT TURBUHALER [Suspect]
     Active Substance: BUDESONIDE
     Indication: Colitis ulcerative
     Route: 048
  165. PULMICORT TURBUHALER [Suspect]
     Active Substance: BUDESONIDE
     Indication: Colitis ulcerative
     Route: 065
  166. PULMICORT TURBUHALER [Suspect]
     Active Substance: BUDESONIDE
     Indication: Colitis ulcerative
     Route: 048
  167. PULMICORT TURBUHALER [Suspect]
     Active Substance: BUDESONIDE
     Indication: Colitis ulcerative
     Route: 048
  168. PULMICORT TURBUHALER [Suspect]
     Active Substance: BUDESONIDE
     Indication: Colitis ulcerative
     Route: 048
  169. CITALOPRAM HYDROBROMIDE [Concomitant]
     Active Substance: CITALOPRAM HYDROBROMIDE
     Indication: Product used for unknown indication
     Route: 065
  170. ESOMEPRAZOLE MAGNESIUM [Suspect]
     Active Substance: ESOMEPRAZOLE MAGNESIUM
     Indication: Gastritis
     Route: 048
  171. CRESTOR [Suspect]
     Active Substance: ROSUVASTATIN CALCIUM
     Indication: Ill-defined disorder
     Route: 065
  172. CRESTOR [Suspect]
     Active Substance: ROSUVASTATIN CALCIUM
     Indication: Ill-defined disorder
     Route: 065
  173. CRESTOR [Suspect]
     Active Substance: ROSUVASTATIN CALCIUM
     Indication: Ill-defined disorder
     Route: 065
  174. AMINOSALICYLIC ACID [Suspect]
     Active Substance: AMINOSALICYLIC ACID
     Indication: Product used for unknown indication
     Route: 048
  175. CLOBETASONE BUTYRATE [Concomitant]
     Active Substance: CLOBETASONE BUTYRATE
     Indication: Product used for unknown indication
     Route: 065
  176. TAMSULOSIN HYDROCHLORIDE [Concomitant]
     Active Substance: TAMSULOSIN HYDROCHLORIDE
     Indication: Ill-defined disorder
     Route: 065
  177. MEBEVERINE HYDROCHLORIDE [Suspect]
     Active Substance: MEBEVERINE HYDROCHLORIDE
     Indication: Product used for unknown indication
     Route: 065
  178. MEBEVERINE HYDROCHLORIDE [Suspect]
     Active Substance: MEBEVERINE HYDROCHLORIDE
     Indication: Product used for unknown indication
     Route: 065
  179. PARAFFIN [Concomitant]
     Active Substance: PARAFFIN
     Indication: Product used for unknown indication
     Route: 065
  180. METFORMIN [Suspect]
     Active Substance: METFORMIN HYDROCHLORIDE
     Indication: Product used for unknown indication
     Route: 065
  181. CORTIFOAM [Suspect]
     Active Substance: HYDROCORTISONE ACETATE
     Indication: Colitis ulcerative
     Route: 048
  182. CORTIFOAM [Suspect]
     Active Substance: HYDROCORTISONE ACETATE
     Indication: Colitis ulcerative
     Route: 048
  183. CORTIFOAM [Suspect]
     Active Substance: HYDROCORTISONE ACETATE
     Indication: Colitis ulcerative
     Route: 048
  184. CORTIFOAM [Suspect]
     Active Substance: HYDROCORTISONE ACETATE
     Indication: Colitis ulcerative
     Route: 048
  185. CORTIFOAM [Suspect]
     Active Substance: HYDROCORTISONE ACETATE
     Indication: Colitis ulcerative
     Route: 065
  186. CORTIFOAM [Suspect]
     Active Substance: HYDROCORTISONE ACETATE
     Indication: Colitis ulcerative
     Route: 065
  187. CORTIFOAM [Suspect]
     Active Substance: HYDROCORTISONE ACETATE
     Indication: Colitis ulcerative
     Route: 065
  188. CORTIFOAM [Suspect]
     Active Substance: HYDROCORTISONE ACETATE
     Indication: Colitis ulcerative
     Route: 065
  189. CORTIFOAM [Suspect]
     Active Substance: HYDROCORTISONE ACETATE
     Indication: Colitis ulcerative
     Route: 048
  190. CORTIFOAM [Suspect]
     Active Substance: HYDROCORTISONE ACETATE
     Indication: Colitis ulcerative
     Route: 065
  191. CORTISONE [Suspect]
     Active Substance: CORTISONE
     Indication: Colitis ulcerative
     Route: 065
  192. CORTISONE [Suspect]
     Active Substance: CORTISONE
     Indication: Colitis ulcerative
     Route: 048
  193. CORTISONE [Suspect]
     Active Substance: CORTISONE
     Indication: Colitis ulcerative
     Route: 048
  194. CORTISONE [Suspect]
     Active Substance: CORTISONE
     Indication: Colitis ulcerative
     Route: 042
  195. CORTISONE [Suspect]
     Active Substance: CORTISONE
     Indication: Colitis ulcerative
     Route: 048
  196. CORTISONE [Suspect]
     Active Substance: CORTISONE
     Indication: Colitis ulcerative
     Route: 048
  197. CORTISONE [Suspect]
     Active Substance: CORTISONE
     Indication: Colitis ulcerative
     Route: 048
  198. CORTISONE [Suspect]
     Active Substance: CORTISONE
     Indication: Colitis ulcerative
     Route: 048
  199. SULFASALAZINE [Suspect]
     Active Substance: SULFASALAZINE
     Indication: Colitis ulcerative
     Route: 065
  200. SULFASALAZINE [Suspect]
     Active Substance: SULFASALAZINE
     Indication: Colitis ulcerative
     Route: 048
  201. SULFASALAZINE [Suspect]
     Active Substance: SULFASALAZINE
     Indication: Colitis ulcerative
     Route: 065
  202. SULFASALAZINE [Suspect]
     Active Substance: SULFASALAZINE
     Indication: Colitis ulcerative
     Route: 065
  203. SULFASALAZINE [Suspect]
     Active Substance: SULFASALAZINE
     Indication: Colitis ulcerative
     Route: 065
  204. SULFASALAZINE [Suspect]
     Active Substance: SULFASALAZINE
     Indication: Colitis ulcerative
     Route: 065
  205. SULFASALAZINE [Suspect]
     Active Substance: SULFASALAZINE
     Indication: Colitis ulcerative
     Route: 065
  206. SULFASALAZINE [Suspect]
     Active Substance: SULFASALAZINE
     Indication: Colitis ulcerative
     Route: 048
  207. SULFASALAZINE [Suspect]
     Active Substance: SULFASALAZINE
     Indication: Colitis ulcerative
     Route: 065
  208. RAMIPRIL [Concomitant]
     Active Substance: RAMIPRIL
     Indication: Ill-defined disorder
     Route: 065
  209. DAPAGLIFLOZIN [Suspect]
     Active Substance: DAPAGLIFLOZIN
     Indication: Ill-defined disorder
     Route: 065
  210. DAPAGLIFLOZIN [Suspect]
     Active Substance: DAPAGLIFLOZIN
     Indication: Ill-defined disorder
     Route: 065
  211. LYRICA [Concomitant]
     Active Substance: PREGABALIN
     Indication: Product used for unknown indication
     Route: 065
  212. ENTYVIO [Suspect]
     Active Substance: VEDOLIZUMAB
     Indication: Colitis ulcerative
     Route: 048
  213. ENTYVIO [Suspect]
     Active Substance: VEDOLIZUMAB
     Indication: Colitis ulcerative
     Route: 065
  214. ENTYVIO [Suspect]
     Active Substance: VEDOLIZUMAB
     Indication: Colitis ulcerative
     Route: 065
  215. ENTYVIO [Suspect]
     Active Substance: VEDOLIZUMAB
     Indication: Colitis ulcerative
     Route: 048
  216. ENTYVIO [Suspect]
     Active Substance: VEDOLIZUMAB
     Indication: Colitis ulcerative
     Route: 048
  217. ENTYVIO [Suspect]
     Active Substance: VEDOLIZUMAB
     Indication: Colitis ulcerative
     Route: 042
  218. ENTYVIO [Suspect]
     Active Substance: VEDOLIZUMAB
     Indication: Colitis ulcerative
     Route: 042
  219. ENTYVIO [Suspect]
     Active Substance: VEDOLIZUMAB
     Indication: Colitis ulcerative
     Route: 042
  220. ENTYVIO [Suspect]
     Active Substance: VEDOLIZUMAB
     Indication: Colitis ulcerative
     Route: 048
  221. ENTYVIO [Suspect]
     Active Substance: VEDOLIZUMAB
     Indication: Colitis ulcerative
     Route: 065
  222. ATORVASTATIN CALCIUM [Concomitant]
     Active Substance: ATORVASTATIN CALCIUM
     Indication: Product used for unknown indication
     Route: 065
  223. ATORVASTATIN CALCIUM [Concomitant]
     Active Substance: ATORVASTATIN CALCIUM
     Indication: Product used for unknown indication
     Route: 048

REACTIONS (50)
  - Systemic lupus erythematosus [Not Recovered/Not Resolved]
  - Off label use [Not Recovered/Not Resolved]
  - Frequent bowel movements [Not Recovered/Not Resolved]
  - Cardiac murmur [Not Recovered/Not Resolved]
  - Swollen tongue [Not Recovered/Not Resolved]
  - Nightmare [Not Recovered/Not Resolved]
  - Pulmonary embolism [Not Recovered/Not Resolved]
  - Eczema [Not Recovered/Not Resolved]
  - Vertigo [Not Recovered/Not Resolved]
  - Parosmia [Not Recovered/Not Resolved]
  - Rhinitis [Not Recovered/Not Resolved]
  - Headache [Not Recovered/Not Resolved]
  - Hypopnoea [Not Recovered/Not Resolved]
  - Stress [Not Recovered/Not Resolved]
  - Impaired work ability [Not Recovered/Not Resolved]
  - Pain [Not Recovered/Not Resolved]
  - Pyrexia [Not Recovered/Not Resolved]
  - Confusional state [Not Recovered/Not Resolved]
  - Abdominal discomfort [Not Recovered/Not Resolved]
  - Rectal haemorrhage [Not Recovered/Not Resolved]
  - Loss of personal independence in daily activities [Not Recovered/Not Resolved]
  - Drug ineffective [Not Recovered/Not Resolved]
  - Catarrh [Not Recovered/Not Resolved]
  - Product use in unapproved indication [Not Recovered/Not Resolved]
  - Cerebrovascular accident [Not Recovered/Not Resolved]
  - Medication error [Not Recovered/Not Resolved]
  - Burns second degree [Not Recovered/Not Resolved]
  - Bronchiectasis [Not Recovered/Not Resolved]
  - Haematochezia [Not Recovered/Not Resolved]
  - Pain in extremity [Not Recovered/Not Resolved]
  - Accidental overdose [Not Recovered/Not Resolved]
  - Condition aggravated [Not Recovered/Not Resolved]
  - Tubulointerstitial nephritis [Not Recovered/Not Resolved]
  - Somnolence [Not Recovered/Not Resolved]
  - Fatigue [Not Recovered/Not Resolved]
  - COVID-19 [Not Recovered/Not Resolved]
  - Depression [Not Recovered/Not Resolved]
  - Migraine [Not Recovered/Not Resolved]
  - Intentional product use issue [Not Recovered/Not Resolved]
  - Colitis ulcerative [Not Recovered/Not Resolved]
  - Arthritis [Not Recovered/Not Resolved]
  - Palpitations [Not Recovered/Not Resolved]
  - Steroid dependence [Not Recovered/Not Resolved]
  - Weight decreased [Not Recovered/Not Resolved]
  - Rash [Not Recovered/Not Resolved]
  - Deep vein thrombosis [Not Recovered/Not Resolved]
  - Gingival pain [Not Recovered/Not Resolved]
  - Dysgeusia [Not Recovered/Not Resolved]
  - Inappropriate schedule of product administration [Not Recovered/Not Resolved]
  - Tinnitus [Not Recovered/Not Resolved]
